FAERS Safety Report 25455094 (Version 3)
Quarter: 2025Q3

REPORT INFORMATION
  Report Type: Spontaneous
  Country: US (occurrence: US)
  Receive Date: 20250619
  Receipt Date: 20250812
  Transmission Date: 20251021
  Serious: Yes (Hospitalization)
  Sender: GLAXOSMITHKLINE
  Company Number: US-GSKCCFUS-Case-02313083_AE-124051

PATIENT
  Age: 84 Year
  Sex: Male

DRUGS (1)
  1. JEMPERLI [Suspect]
     Active Substance: DOSTARLIMAB-GXLY
     Indication: Hepatocellular carcinoma

REACTIONS (3)
  - Hospitalisation [Unknown]
  - Infusion site extravasation [Unknown]
  - Product use in unapproved indication [Unknown]

NARRATIVE: CASE EVENT DATE: 20240708
